FAERS Safety Report 11485338 (Version 4)
Quarter: 2015Q4

REPORT INFORMATION
  Report Type: Report from Study
  Country: FR (occurrence: FR)
  Receive Date: 20150909
  Receipt Date: 20151113
  Transmission Date: 20160304
  Serious: Yes (Other)
  Sender: FDA-Public Use
  Company Number: FR-GLAXOSMITHKLINE-FR2015GSK127172

PATIENT
  Age: 69 Year
  Sex: Female
  Weight: 72 kg

DRUGS (2)
  1. DABRAFENIB [Suspect]
     Active Substance: DABRAFENIB
     Indication: MALIGNANT MELANOMA
     Dosage: 150 MG, BID
     Route: 048
     Dates: start: 20150816, end: 20150901
  2. TRAMETINIB [Suspect]
     Active Substance: TRAMETINIB
     Indication: MALIGNANT MELANOMA
     Dosage: 2 MG, QD
     Route: 048
     Dates: start: 20150815

REACTIONS (1)
  - Liver injury [Recovering/Resolving]

NARRATIVE: CASE EVENT DATE: 20150901
